FAERS Safety Report 6675079-7 (Version None)
Quarter: 2010Q2

REPORT INFORMATION
  Report Type: 
  Country: None (occurrence: None)
  Receive Date: 20100407
  Receipt Date: 20100323
  Transmission Date: 20101027
  Serious: Yes (Other)
  Sender: FDA-Public Use
  Company Number: 2010001046

PATIENT
  Age: 52 Year
  Sex: Female

DRUGS (9)
  1. TARCEVA [Suspect]
     Indication: LUNG ADENOCARCINOMA
     Dosage: 150 MG, QD, ORAL
     Route: 048
     Dates: start: 20100118, end: 20100222
  2. GEMZAR [Suspect]
     Indication: LUNG ADENOCARCINOMA
     Dosage: 1.6 GM, INTRAVENOUS
     Route: 042
     Dates: start: 20091201, end: 20091229
  3. CISPLATIN [Suspect]
     Indication: LUNG ADENOCARCINOMA
     Dosage: 130 MG, INTRAVENOUS
     Route: 042
     Dates: start: 20091201, end: 20091222
  4. HEPARIN SODIUM [Concomitant]
  5. DALTEPARIN SODIUM [Concomitant]
  6. DECADRON [Concomitant]
  7. BACTRIM [Concomitant]
  8. ACTONEL [Concomitant]
  9. MIGLITOL (MIGLITOL) [Concomitant]

REACTIONS (4)
  - ELECTROCARDIOGRAM ST SEGMENT ELEVATION [None]
  - INTERSTITIAL LUNG DISEASE [None]
  - PLEURAL EFFUSION [None]
  - PULMONARY EMBOLISM [None]
